FAERS Safety Report 11074464 (Version 3)
Quarter: 2015Q4

REPORT INFORMATION
  Report Type: Report from Study
  Country: JP (occurrence: JP)
  Receive Date: 20150429
  Receipt Date: 20151008
  Transmission Date: 20160304
  Serious: Yes (Death, Other)
  Sender: FDA-Public Use
  Company Number: JP-ROCHE-1569725

PATIENT
  Age: 89 Year
  Sex: Female

DRUGS (2)
  1. XOLAIR [Suspect]
     Active Substance: OMALIZUMAB
     Route: 058
     Dates: start: 20150223
  2. XOLAIR [Suspect]
     Active Substance: OMALIZUMAB
     Indication: ASTHMA
     Route: 058
     Dates: start: 20130530

REACTIONS (4)
  - Staphylococcal infection [Unknown]
  - Opportunistic infection [Fatal]
  - Rectal cancer [Fatal]
  - Immunodeficiency [Fatal]

NARRATIVE: CASE EVENT DATE: 201412
